FAERS Safety Report 5403103-8 (Version None)
Quarter: 2007Q3

REPORT INFORMATION
  Report Type: 
  Country: None (occurrence: None)
  Receive Date: 20070801
  Receipt Date: 20070724
  Transmission Date: 20080115
  Serious: Yes (Hospitalization, Other)
  Sender: FDA-Public Use
  Company Number: BR-SHR-BR-2006-036386

PATIENT
  Age: 51 Year
  Sex: Female

DRUGS (1)
  1. BETASERON [Suspect]
     Dosage: 8 MIU, 3X/WEEK
     Route: 058
     Dates: start: 20050722, end: 20051101

REACTIONS (3)
  - FALL [None]
  - JOINT SPRAIN [None]
  - TUBERCULOSIS [None]
